FAERS Safety Report 4726912-7 (Version None)
Quarter: 2005Q3

REPORT INFORMATION
  Report Type: 
  Country: None (occurrence: None)
  Receive Date: 20050725
  Receipt Date: 20050725
  Transmission Date: 20060218
  Serious: No
  Sender: FDA-Public Use
  Company Number: None

PATIENT
  Age: 49 Year
  Sex: Female
  Weight: 73.2559 kg

DRUGS (2)
  1. TOPAMAX [Suspect]
     Indication: HEADACHE
     Dosage: 25 MG 2 X DAY ORAL
     Route: 048
     Dates: start: 20050712, end: 20050721
  2. TOPAMAX [Suspect]
     Indication: PROPHYLAXIS
     Dosage: 25 MG 2 X DAY ORAL
     Route: 048
     Dates: start: 20050712, end: 20050721

REACTIONS (8)
  - CONVULSION [None]
  - EYE PAIN [None]
  - GLAUCOMA [None]
  - HEADACHE [None]
  - LOSS OF CONSCIOUSNESS [None]
  - NAUSEA [None]
  - VISION BLURRED [None]
  - VISUAL FIELD DEFECT [None]
